FAERS Safety Report 15994698 (Version 5)
Quarter: 2020Q4

REPORT INFORMATION
  Report Type: Report from Study
  Country: FR (occurrence: FR)
  Receive Date: 20190222
  Receipt Date: 20201203
  Transmission Date: 20210113
  Serious: Yes (Other)
  Sender: FDA-Public Use
  Company Number: PHHO2019FR002017

PATIENT
  Age: 46 Year
  Sex: Female
  Weight: 48 kg

DRUGS (17)
  1. CYTARABINE. [Suspect]
     Active Substance: CYTARABINE
     Dosage: 4800 MG, QD
     Route: 042
     Dates: start: 20181224
  2. METHOTREXATE. [Suspect]
     Active Substance: METHOTREXATE
     Indication: PRODUCT USED FOR UNKNOWN INDICATION
     Dosage: 15 MG, UNK
     Route: 042
     Dates: start: 20181116, end: 20181116
  3. METHOTREXATE. [Suspect]
     Active Substance: METHOTREXATE
     Dosage: 1590 MG, UNK
     Route: 042
     Dates: start: 20181221, end: 20181221
  4. CYTARABINE. [Suspect]
     Active Substance: CYTARABINE
     Indication: PRODUCT USED FOR UNKNOWN INDICATION
     Dosage: 40 MG
     Route: 065
     Dates: start: 20181116, end: 20181116
  5. VINCRISTINE [Suspect]
     Active Substance: VINCRISTINE
     Dosage: 2 MG
     Route: 065
     Dates: start: 20181123
  6. DASATINIB. [Concomitant]
     Active Substance: DASATINIB
     Indication: PRODUCT USED FOR UNKNOWN INDICATION
     Dosage: 100 MG, UNK
     Route: 048
     Dates: start: 20180108, end: 20190113
  7. DEXAMETHASONE. [Suspect]
     Active Substance: DEXAMETHASONE
     Dosage: 40 UNK
     Route: 048
     Dates: start: 20181123, end: 20181124
  8. CYTARABINE. [Suspect]
     Active Substance: CYTARABINE
     Dosage: 4800 MG, QD
     Route: 042
     Dates: start: 20181222, end: 20181224
  9. METHOTREXATE. [Suspect]
     Active Substance: METHOTREXATE
     Dosage: 15 MG, UNK
     Route: 042
     Dates: start: 20181122, end: 20181122
  10. METHOTREXATE. [Suspect]
     Active Substance: METHOTREXATE
     Dosage: 15 MG, UNK
     Route: 042
     Dates: start: 20181228, end: 20181228
  11. NILOTINIB [Suspect]
     Active Substance: NILOTINIB
     Indication: ACUTE LYMPHOCYTIC LEUKAEMIA
     Dosage: 800 MG, QD
     Route: 048
     Dates: start: 20181116, end: 20181126
  12. VINCRISTINE [Suspect]
     Active Substance: VINCRISTINE
     Indication: PRODUCT USED FOR UNKNOWN INDICATION
     Dosage: 2 MG
     Route: 065
     Dates: start: 20181116
  13. NILOTINIB [Suspect]
     Active Substance: NILOTINIB
     Dosage: 600 MG, QD
     Route: 048
     Dates: start: 20181129, end: 20181224
  14. DEXAMETHASONE. [Suspect]
     Active Substance: DEXAMETHASONE
     Indication: PRODUCT USED FOR UNKNOWN INDICATION
     Dosage: 40 UNK
     Route: 048
     Dates: start: 20181116, end: 20181117
  15. CYTARABINE. [Suspect]
     Active Substance: CYTARABINE
     Dosage: 40 MG
     Route: 065
     Dates: start: 20181122, end: 20181122
  16. CYTARABINE. [Suspect]
     Active Substance: CYTARABINE
     Dosage: 4800 MG, QD
     Route: 042
     Dates: start: 20181228, end: 20181228
  17. DEPO-MEDROL [Concomitant]
     Active Substance: METHYLPREDNISOLONE ACETATE
     Indication: PRODUCT USED FOR UNKNOWN INDICATION
     Dosage: UNK
     Route: 065
     Dates: start: 20181228

REACTIONS (3)
  - Hepatitis toxic [Recovered/Resolved]
  - Hepatitis E [Recovered/Resolved]
  - Hepatitis toxic [Recovered/Resolved]

NARRATIVE: CASE EVENT DATE: 20181123
